FAERS Safety Report 8675958 (Version 2)
Quarter: 2012Q4

REPORT INFORMATION
  Report Type: 
  Country: CA (occurrence: CA)
  Receive Date: 20120720
  Receipt Date: 20121111
  Transmission Date: 20130627
  Serious: Yes (Hospitalization, Other)
  Sender: FDA-Public Use
  Company Number: PHHY2012CA025108

PATIENT
  Sex: Male

DRUGS (4)
  1. SANDOSTATIN LAR [Suspect]
     Indication: NEUROENDOCRINE TUMOUR
     Dosage: 30 mg, every 4 weeks
     Route: 030
     Dates: start: 201112
  2. SANDOSTATIN LAR [Suspect]
     Dosage: 30 mg, every 4 weeks
     Route: 030
     Dates: start: 20120124, end: 20121004
  3. GLYBURIDE [Concomitant]
     Dosage: 2 DF, daily
  4. METFORMIN [Concomitant]
     Dosage: UNK UKN, UNK

REACTIONS (8)
  - Intestinal obstruction [Unknown]
  - Muscle injury [Unknown]
  - Malignant neoplasm progression [Not Recovered/Not Resolved]
  - Hyperglycaemia [Unknown]
  - Hypoglycaemia [Recovered/Resolved]
  - Blood chromogranin A increased [Unknown]
  - Abdominal pain [Recovered/Resolved]
  - Constipation [Unknown]
